FAERS Safety Report 7179435-2 (Version None)
Quarter: 2010Q4

REPORT INFORMATION
  Report Type: 
  Country: None (occurrence: None)
  Receive Date: 20101208
  Receipt Date: 20101206
  Transmission Date: 20110411
  Serious: Yes (Hospitalization, Other)
  Sender: FDA-Public Use
  Company Number: JHP201000346

PATIENT
  Age: 30 Year
  Sex: Male

DRUGS (1)
  1. KETALAR [Suspect]
     Indication: DRUG ABUSE
     Dosage: USED KETAMINE FOR 10 YEARS, INHALED DAILY NASALLY FOR 7 YEARS, INHALATION
     Route: 055

REACTIONS (7)
  - CONTRACTED BLADDER [None]
  - CYSTITIS INTERSTITIAL [None]
  - DRUG ABUSER [None]
  - LIVER FUNCTION TEST ABNORMAL [None]
  - RENAL FAILURE CHRONIC [None]
  - RENAL PAPILLARY NECROSIS [None]
  - URETERIC STENOSIS [None]
